FAERS Safety Report 5831130-5 (Version None)
Quarter: 2008Q3

REPORT INFORMATION
  Report Type: 
  Country: None (occurrence: None)
  Receive Date: 20080801
  Receipt Date: 20080416
  Transmission Date: 20090109
  Serious: No
  Sender: FDA-Public Use
  Company Number: US-BRISTOL-MYERS SQUIBB COMPANY-14154124

PATIENT
  Age: 86 Year
  Sex: Female
  Weight: 63 kg

DRUGS (7)
  1. COUMADIN [Suspect]
     Indication: MYOCARDIAL INFARCTION
  2. ZIAC [Concomitant]
  3. AMIODARONE [Concomitant]
  4. TEKTURNA [Concomitant]
     Indication: HYPERTENSION
  5. BENICAR [Concomitant]
  6. LIPITOR [Concomitant]
  7. ASPIRIN [Concomitant]

REACTIONS (2)
  - HAEMOGLOBIN DECREASED [None]
  - RED BLOOD CELL COUNT DECREASED [None]
